FAERS Safety Report 8880395 (Version 2)
Quarter: 2012Q4

REPORT INFORMATION
  Report Type: 
  Country: US (occurrence: US)
  Receive Date: 20121031
  Receipt Date: 20121227
  Transmission Date: 20130627
  Serious: Yes (Other)
  Sender: FDA-Public Use
  Company Number: US-ASTRAZENECA-2012SE81252

PATIENT
  Age: 54 Year
  Sex: Male
  Weight: 74.8 kg

DRUGS (23)
  1. TOPROL XL [Suspect]
     Route: 048
     Dates: start: 2010
  2. TOPROL XL [Suspect]
     Route: 048
     Dates: start: 201111, end: 2012
  3. TOPROL XL [Suspect]
     Route: 048
     Dates: start: 2012
  4. BENICAR HCT [Suspect]
     Indication: DIURETIC THERAPY
     Route: 065
     Dates: end: 2011
  5. CLONIDINE HCL [Suspect]
     Indication: BLOOD PRESSURE ABNORMAL
     Route: 065
     Dates: start: 2010, end: 2012
  6. HYDROCHLOROTHIAZIDE [Concomitant]
     Indication: DIURETIC THERAPY
     Dates: start: 2011
  7. PANCREAZE [Concomitant]
     Indication: PANCREATIC DISORDER
     Dosage: 16800 UNIT /CAPSULE, AC
     Dates: start: 2009
  8. THIAMIN B1 [Concomitant]
     Dosage: DAILY
     Dates: start: 2010
  9. SIMVASTATIN [Concomitant]
     Indication: BLOOD CHOLESTEROL ABNORMAL
     Dates: start: 2009
  10. ASPIRIN [Concomitant]
     Indication: CARDIAC DISORDER
  11. ASPIRIN [Concomitant]
     Indication: ANTICOAGULANT THERAPY
  12. ASPIRIN [Concomitant]
     Indication: ANGINA PECTORIS
  13. NITROSTAT [Concomitant]
     Indication: ANGINA PECTORIS
     Dates: start: 2002
  14. NITROSTAT [Concomitant]
     Indication: HYPERTENSION
     Dates: start: 2002
  15. NITROGLYCERIN [Concomitant]
     Indication: ANGINA PECTORIS
     Dosage: PRN
  16. NITROGLYCERIN [Concomitant]
     Indication: HYPERTENSION
     Dosage: PRN
  17. NITROGLYCERIN [Concomitant]
     Indication: ANGINA PECTORIS
     Dosage: PRN
  18. NITROGLYCERIN [Concomitant]
     Indication: HYPERTENSION
     Dosage: PRN
  19. DIAZEPAM [Concomitant]
     Indication: ANXIETY
     Dates: start: 2011
  20. TRAMADOL [Concomitant]
     Indication: PAIN
     Dates: start: 2011
  21. BENADRYL [Concomitant]
     Indication: SLEEP DISORDER
     Dates: start: 2009
  22. BENADRYL [Concomitant]
     Indication: SEASONAL ALLERGY
     Dates: start: 2009
  23. BENADRYL [Concomitant]
     Indication: HOUSE DUST ALLERGY
     Dates: start: 2009

REACTIONS (17)
  - Renal failure acute [Unknown]
  - Meningitis [Unknown]
  - Myocardial infarction [Unknown]
  - Hyperkalaemia [Unknown]
  - Metabolic acidosis [Unknown]
  - Blood pressure fluctuation [Unknown]
  - Cardiac failure congestive [Unknown]
  - Blood pressure decreased [Unknown]
  - Blood pressure increased [Unknown]
  - Intentional drug misuse [Unknown]
  - Arthropod bite [Unknown]
  - Pain [Unknown]
  - Hyperphagia [Unknown]
  - Memory impairment [Unknown]
  - Weight increased [Unknown]
  - Lethargy [Unknown]
  - Anxiety [Unknown]
